FAERS Safety Report 12146045 (Version 1)
Quarter: 2016Q1

REPORT INFORMATION
  Report Type: Spontaneous
  Country: US (occurrence: US)
  Receive Date: 20160304
  Receipt Date: 20160304
  Transmission Date: 20160526
  Serious: No
  Sender: FDA-Public Use
  Company Number: US-PERRIGO-15US004751

PATIENT
  Sex: Female
  Weight: 76.64 kg

DRUGS (5)
  1. NAPROXEN. [Concomitant]
     Active Substance: NAPROXEN
     Indication: ACCIDENTAL EXPOSURE TO PRODUCT
     Dosage: 1 TO 2 TABLETS, EVERY 5 HOURS, PRN
     Route: 048
     Dates: start: 2015, end: 2015
  2. NAPROXEN SODIUM 220 MG NCRC 901 [Suspect]
     Active Substance: NAPROXEN SODIUM
     Indication: HEADACHE
     Dosage: 220 TO 440 MG, EVERY 5 HOURS, PRN
     Route: 048
     Dates: start: 2015
  3. CONTRACEPTIVES [Concomitant]
     Active Substance: UNSPECIFIED INGREDIENT
     Indication: CONTRACEPTION
     Route: 065
  4. NAPROXEN SODIUM 220 MG NCRC 901 [Suspect]
     Active Substance: NAPROXEN SODIUM
     Indication: DYSMENORRHOEA
  5. NAPROXEN SODIUM 220 MG 368 [Suspect]
     Active Substance: NAPROXEN SODIUM
     Indication: ACCIDENTAL EXPOSURE TO PRODUCT
     Dosage: 220 TO 440 MG, EVERY 5 HOURS, PRN
     Route: 048
     Dates: start: 2015, end: 2015

REACTIONS (4)
  - Inappropriate schedule of drug administration [Unknown]
  - Product commingling [None]
  - Accidental exposure to product [Recovered/Resolved]
  - No adverse event [Recovered/Resolved]

NARRATIVE: CASE EVENT DATE: 2015
